FAERS Safety Report 11654801 (Version 1)
Quarter: 2015Q4

REPORT INFORMATION
  Report Type: Report from Study
  Country: GB (occurrence: GB)
  Receive Date: 20151023
  Receipt Date: 20151023
  Transmission Date: 20160304
  Serious: Yes (Other)
  Sender: FDA-Public Use
  Company Number: PHFR2015GB007771

PATIENT
  Age: 48 Year
  Sex: Female

DRUGS (1)
  1. GILENYA [Suspect]
     Active Substance: FINGOLIMOD HYDROCHLORIDE
     Indication: RELAPSING-REMITTING MULTIPLE SCLEROSIS
     Dosage: 0.5 OT, UNK
     Route: 065
     Dates: start: 20141020, end: 20150407

REACTIONS (7)
  - Impaired healing [Unknown]
  - Feeling abnormal [Recovered/Resolved]
  - Eye pain [Unknown]
  - Diarrhoea [Recovered/Resolved]
  - Uterine leiomyoma [Unknown]
  - Nasopharyngitis [Unknown]
  - Fall [Unknown]

NARRATIVE: CASE EVENT DATE: 20141020
